FAERS Safety Report 6111573-5 (Version None)
Quarter: 2009Q1

REPORT INFORMATION
  Report Type: 
  Country: None (occurrence: None)
  Receive Date: 20090310
  Receipt Date: 20090310
  Transmission Date: 20090719
  Serious: Yes (Other)
  Sender: FDA-Public Use
  Company Number: None

PATIENT
  Age: 60 Year
  Sex: Female
  Weight: 86.1834 kg

DRUGS (1)
  1. ESTRACE [Suspect]
     Dosage: 1/2 GRAM ONCE A WEEK VAG
     Route: 067
     Dates: start: 20071215, end: 20081229

REACTIONS (3)
  - BREAST SWELLING [None]
  - DISCOMFORT [None]
  - SWELLING [None]
